FAERS Safety Report 21246248 (Version 2)
Quarter: 2022Q3

REPORT INFORMATION
  Report Type: Other
  Country: US (occurrence: None)
  Receive Date: 20220824
  Receipt Date: 20220826
  Transmission Date: 20221026
  Serious: Yes (Death)
  Sender: FDA-Public Use
  Company Number: US-ROCHE-3166726

PATIENT
  Sex: Female

DRUGS (1)
  1. XELODA [Suspect]
     Active Substance: CAPECITABINE
     Indication: Ductal adenocarcinoma of pancreas
     Dosage: TAKE 3 TABLETS (1500MG) BY MOUTH TWICE A DAY FOR 2 WEEKS ON, 1 WEEK OFF
     Route: 048

REACTIONS (2)
  - Death [Fatal]
  - Off label use [Unknown]
